FAERS Safety Report 9456449 (Version 1)
Quarter: 2013Q3

REPORT INFORMATION
  Report Type: Spontaneous
  Country: FR (occurrence: FR)
  Receive Date: 20130813
  Receipt Date: 20130813
  Transmission Date: 20140515
  Serious: Yes (Disabling)
  Sender: FDA-Public Use
  Company Number: FR-ASTRAZENECA-2013SE61272

PATIENT
  Age: 2250 Day
  Sex: Female

DRUGS (3)
  1. NAROPEINE [Suspect]
     Indication: LOCAL ANAESTHESIA
     Dosage: 1 ML, SINGLE ADMINISTRATION, SUB-TENON^S INJECTION
     Dates: start: 20130710, end: 20130710
  2. PROPOFOL LIPURO [Concomitant]
  3. SUFENTANIL MERCK [Concomitant]

REACTIONS (2)
  - Eye inflammation [Recovered/Resolved]
  - Extraocular muscle paresis [Recovered/Resolved]
